FAERS Safety Report 4647255-6 (Version None)
Quarter: 2005Q2

REPORT INFORMATION
  Report Type: 
  Country: None (occurrence: None)
  Receive Date: 20050426
  Receipt Date: 20050412
  Transmission Date: 20051028
  Serious: Yes (Other)
  Sender: FDA-Public Use
  Company Number: 2005058875

PATIENT
  Age: 47 Year
  Sex: Female
  Weight: 93.441 kg

DRUGS (7)
  1. GABAPENTIN [Suspect]
     Indication: DIABETIC NEUROPATHY
     Dosage: 4500 MG (1500 MG 3 IN 1 D) ORAL
     Route: 048
  2. CARBAMAZEPINE [Concomitant]
  3. ATORVASTATIN (ATORVASTATIN) [Concomitant]
  4. LEVOTHYROXINE SODIUM [Concomitant]
  5. SERTRALINE HCL [Concomitant]
  6. INSULIN [Concomitant]
  7. SIMAVSTATIN (SIMVASTATIN) [Concomitant]

REACTIONS (7)
  - BLOOD CHOLESTEROL INCREASED [None]
  - BLOOD THYROID STIMULATING HORMONE INCREASED [None]
  - BLOOD TRIGLYCERIDES INCREASED [None]
  - DRUG INEFFECTIVE [None]
  - HYSTERECTOMY [None]
  - LOW DENSITY LIPOPROTEIN INCREASED [None]
  - THERAPEUTIC RESPONSE UNEXPECTED WITH DRUG SUBSTITUTION [None]
